FAERS Safety Report 9643220 (Version 3)
Quarter: 2013Q4

REPORT INFORMATION
  Report Type: Spontaneous
  Country: US (occurrence: US)
  Receive Date: 20131024
  Receipt Date: 20131108
  Transmission Date: 20140711
  Serious: Yes (Other)
  Sender: FDA-Public Use
  Company Number: US-TAKEDA-TPA2013A03439

PATIENT
  Sex: 0

DRUGS (9)
  1. ACTOS [Suspect]
     Indication: TYPE 2 DIABETES MELLITUS
     Dosage: UNK
     Dates: start: 2003, end: 2007
  2. ACTOS [Suspect]
     Dosage: 45 MG, UNK
     Dates: start: 20080107, end: 20090512
  3. ACTOS [Suspect]
     Dosage: 30 MG, UNK
     Dates: start: 20101105, end: 20110919
  4. METFORMIN [Concomitant]
     Dosage: UNK
     Dates: start: 2010
  5. AVANDIA [Concomitant]
  6. STARLIX [Concomitant]
     Dosage: 40 IU BID
     Dates: start: 2011
  7. LANTUS [Concomitant]
     Dosage: 1000 IU QD
     Dates: start: 2012
  8. GLUCOTROL [Concomitant]
  9. JANUVIA [Concomitant]

REACTIONS (2)
  - Haematuria [Unknown]
  - Bladder cancer [Not Recovered/Not Resolved]
